FAERS Safety Report 24264284 (Version 1)
Quarter: 2024Q3

REPORT INFORMATION
  Report Type: Spontaneous
  Country: CN (occurrence: CN)
  Receive Date: 20240829
  Receipt Date: 20240829
  Transmission Date: 20241017
  Serious: Yes (Hospitalization, Other)
  Sender: BAXTER
  Company Number: None

PATIENT
  Age: 43 Year
  Sex: Female
  Weight: 64 kg

DRUGS (2)
  1. CYCLOPHOSPHAMIDE [Suspect]
     Active Substance: CYCLOPHOSPHAMIDE
     Indication: Breast cancer female
     Dosage: 780 MG, ONE TIME IN ONE DAY, SECOND CYCLE
     Route: 041
     Dates: start: 20240805, end: 20240805
  2. EPIRUBICIN HYDROCHLORIDE [Suspect]
     Active Substance: EPIRUBICIN HYDROCHLORIDE
     Indication: Breast cancer female
     Dosage: 160 MG, ONE TIME IN ONE DAY, SECOND CYCLE
     Route: 041
     Dates: start: 20240805, end: 20240805

REACTIONS (4)
  - Breast cancer [Unknown]
  - Granulocyte count decreased [Recovering/Resolving]
  - Cough [Unknown]
  - Dyspnoea [Unknown]

NARRATIVE: CASE EVENT DATE: 20240810
